FAERS Safety Report 8241115 (Version 2)
Quarter: 2012Q4

REPORT INFORMATION
  Report Type: 
  Country: US (occurrence: US)
  Receive Date: 20111111
  Receipt Date: 20121113
  Transmission Date: 20130627
  Serious: No
  Sender: FDA-Public Use
  Company Number: US-GLAXOSMITHKLINE-A0931370A

PATIENT
  Age: 3 Year
  Sex: Male
  Weight: 15 kg

DRUGS (1)
  1. COREG [Suspect]
     Indication: CARDIAC FAILURE
     Dosage: .35MG Unknown
     Route: 048

REACTIONS (6)
  - Blood pressure decreased [Recovering/Resolving]
  - Lethargy [Not Recovered/Not Resolved]
  - Mood altered [Not Recovered/Not Resolved]
  - Off label use [Unknown]
  - Fatigue [Not Recovered/Not Resolved]
  - Incorrect dose administered [Unknown]
